FAERS Safety Report 16822567 (Version 1)
Quarter: 2019Q3

REPORT INFORMATION
  Report Type: Spontaneous
  Country: US (occurrence: US)
  Receive Date: 20190918
  Receipt Date: 20190918
  Transmission Date: 20191005
  Serious: No
  Sender: FDA-Public Use
  Company Number: US-PFIZER INC-2019402061

PATIENT

DRUGS (2)
  1. CHANTIX [Suspect]
     Active Substance: VARENICLINE TARTRATE
     Dosage: UNK(CHANTIX CONTINUE PACK, USE AS DIRECTED)
  2. CHANTIX [Suspect]
     Active Substance: VARENICLINE TARTRATE
     Dosage: UNK(CHANTIX STARTER, 0.5 MG + 1 MG, USE AS DIRECTED)

REACTIONS (1)
  - Loss of personal independence in daily activities [Unknown]
